FAERS Safety Report 10601798 (Version 1)
Quarter: 2014Q4

REPORT INFORMATION
  Report Type: Spontaneous
  Country: US (occurrence: None)
  Receive Date: 20141121
  Receipt Date: 20141121
  Transmission Date: 20150529
  Serious: Yes (Disabling, Other)
  Sender: FDA-Public Use
  Company Number: None

PATIENT
  Age: 56 Year
  Sex: Female
  Weight: 102.06 kg

DRUGS (2)
  1. TRAMADOL 50 HCL AMNEAL [Suspect]
     Active Substance: TRAMADOL
     Indication: SPONDYLITIS
     Dosage: 2 PILLS --TOTAL 100 MG A DAY
     Route: 048
     Dates: start: 20141001, end: 20141120
  2. TRAMADOL 50 HCL AMNEAL [Suspect]
     Active Substance: TRAMADOL
     Indication: INTERVERTEBRAL DISC PROTRUSION
     Dosage: 2 PILLS --TOTAL 100 MG A DAY
     Route: 048
     Dates: start: 20141001, end: 20141120

REACTIONS (5)
  - Depression [None]
  - Drug withdrawal syndrome [None]
  - Paraesthesia [None]
  - Pain [None]
  - Product formulation issue [None]

NARRATIVE: CASE EVENT DATE: 20141001
